FAERS Safety Report 5370234-0 (Version None)
Quarter: 2007Q2

REPORT INFORMATION
  Report Type: 
  Country: None (occurrence: None)
  Receive Date: 20070614
  Receipt Date: 20070409
  Transmission Date: 20071010
  Serious: No
  Sender: FDA-Public Use
  Company Number: BDI-009368

PATIENT
  Age: 20 Year
  Sex: Male

DRUGS (2)
  1. MULTIHANCE [Suspect]
     Indication: CONVULSION
     Dosage: 17 ML ONCE IV
     Route: 042
     Dates: start: 20070407, end: 20070407
  2. MULTIHANCE [Suspect]
     Indication: NUCLEAR MAGNETIC RESONANCE IMAGING BRAIN
     Dosage: 17 ML ONCE IV
     Route: 042
     Dates: start: 20070407, end: 20070407

REACTIONS (2)
  - NAUSEA [None]
  - VOMITING PROJECTILE [None]
